FAERS Safety Report 20619672 (Version 3)
Quarter: 2022Q4

REPORT INFORMATION
  Report Type: Report from Study
  Country: FR (occurrence: FR)
  Receive Date: 20220322
  Receipt Date: 20221026
  Transmission Date: 20230113
  Serious: Yes (Hospitalization, Other)
  Sender: FDA-Public Use
  Company Number: FR-TAKEDA-2022TUS017422

PATIENT
  Age: 10 Year
  Sex: Male

DRUGS (16)
  1. TEDUGLUTIDE [Suspect]
     Active Substance: TEDUGLUTIDE
     Indication: Short-bowel syndrome
     Dosage: 1.4 MILLIGRAM, QD
     Route: 042
     Dates: start: 20200706, end: 20201109
  2. TEDUGLUTIDE [Suspect]
     Active Substance: TEDUGLUTIDE
     Indication: Short-bowel syndrome
     Dosage: 1.4 MILLIGRAM, QD
     Route: 042
     Dates: start: 20200706, end: 20201109
  3. TEDUGLUTIDE [Suspect]
     Active Substance: TEDUGLUTIDE
     Indication: Short-bowel syndrome
     Dosage: 1.4 MILLIGRAM, QD
     Route: 042
     Dates: start: 20200706, end: 20201109
  4. TEDUGLUTIDE [Suspect]
     Active Substance: TEDUGLUTIDE
     Indication: Short-bowel syndrome
     Dosage: 1.4 MILLIGRAM, QD
     Route: 042
     Dates: start: 20200706, end: 20201109
  5. TEDUGLUTIDE [Suspect]
     Active Substance: TEDUGLUTIDE
     Dosage: 1.6 MILLIGRAM, QD
     Route: 042
     Dates: start: 20201110, end: 2022
  6. TEDUGLUTIDE [Suspect]
     Active Substance: TEDUGLUTIDE
     Dosage: 1.6 MILLIGRAM, QD
     Route: 042
     Dates: start: 20201110, end: 2022
  7. TEDUGLUTIDE [Suspect]
     Active Substance: TEDUGLUTIDE
     Dosage: 1.6 MILLIGRAM, QD
     Route: 042
     Dates: start: 20201110, end: 2022
  8. TEDUGLUTIDE [Suspect]
     Active Substance: TEDUGLUTIDE
     Dosage: 1.6 MILLIGRAM, QD
     Route: 042
     Dates: start: 20201110, end: 2022
  9. TEDUGLUTIDE [Suspect]
     Active Substance: TEDUGLUTIDE
     Dosage: 1.8 MILLIGRAM, QD
     Route: 042
     Dates: start: 2022
  10. TEDUGLUTIDE [Suspect]
     Active Substance: TEDUGLUTIDE
     Dosage: 1.8 MILLIGRAM, QD
     Route: 042
     Dates: start: 2022
  11. TEDUGLUTIDE [Suspect]
     Active Substance: TEDUGLUTIDE
     Dosage: 1.8 MILLIGRAM, QD
     Route: 042
     Dates: start: 2022
  12. TEDUGLUTIDE [Suspect]
     Active Substance: TEDUGLUTIDE
     Dosage: 1.8 MILLIGRAM, QD
     Route: 042
     Dates: start: 2022
  13. MEROPENEM [Concomitant]
     Active Substance: MEROPENEM
     Indication: Antibiotic therapy
     Dosage: 500 MILLIGRAM, TID
     Route: 042
     Dates: start: 20210726, end: 20210804
  14. MEROPENEM [Concomitant]
     Active Substance: MEROPENEM
     Dosage: 500 MILLIGRAM, TID
     Route: 042
     Dates: start: 20210813, end: 20210815
  15. AMIKACIN SULFATE [Concomitant]
     Active Substance: AMIKACIN SULFATE
     Indication: Antibiotic therapy
     Dosage: 460 MILLIGRAM, QD
     Route: 042
     Dates: start: 20210813, end: 20210815
  16. SODIUM CHLORIDE [Concomitant]
     Active Substance: SODIUM CHLORIDE
     Indication: Mineral supplementation
     Dosage: 8 GRAM, 2/WEEK
     Route: 048
     Dates: start: 20210629

REACTIONS (1)
  - Device breakage [Recovered/Resolved]

NARRATIVE: CASE EVENT DATE: 20210831
